FAERS Safety Report 8265318-3 (Version None)
Quarter: 2012Q2

REPORT INFORMATION
  Report Type: 
  Country: None (occurrence: None)
  Receive Date: 20120406
  Receipt Date: 20120326
  Transmission Date: 20120825
  Serious: Yes (Hospitalization)
  Sender: FDA-Public Use
  Company Number: PL-SANOFI-AVENTIS-2012SA015638

PATIENT
  Age: 50 Year
  Sex: Female
  Weight: 70 kg

DRUGS (17)
  1. BLINDED THERAPY [Suspect]
  2. BLINDED THERAPY [Suspect]
     Dates: start: 20111216
  3. DOCETAXEL [Suspect]
     Route: 042
     Dates: start: 20111216, end: 20111216
  4. ONDANSETRON [Concomitant]
     Dates: start: 20111216, end: 20111216
  5. BLINDED THERAPY [Suspect]
  6. DEXAMETHASONE [Concomitant]
     Dates: start: 20111215, end: 20120105
  7. FUROSEMIDE [Concomitant]
  8. DOCETAXEL [Suspect]
     Indication: BREAST CANCER
     Route: 042
     Dates: start: 20110901, end: 20110901
  9. DOCETAXEL [Suspect]
     Route: 042
     Dates: start: 20111001, end: 20111001
  10. DOCETAXEL [Suspect]
     Route: 042
     Dates: start: 20111101, end: 20111101
  11. PAMIDRONATE DISODIUM [Concomitant]
     Dates: start: 20111216, end: 20111216
  12. DOCETAXEL [Suspect]
     Route: 042
     Dates: start: 20110901, end: 20110901
  13. BLINDED THERAPY [Suspect]
     Indication: BREAST CANCER
     Dates: start: 20110901
  14. OMEPRAZOLE [Concomitant]
     Dates: start: 20111215, end: 20120105
  15. DOCETAXEL [Suspect]
     Route: 042
     Dates: start: 20111001, end: 20111001
  16. BLINDED THERAPY [Suspect]
  17. BLINDED THERAPY [Suspect]

REACTIONS (1)
  - PNEUMOTHORAX [None]
